FAERS Safety Report 22036539 (Version 1)
Quarter: 2023Q1

REPORT INFORMATION
  Report Type: Spontaneous
  Country: CN (occurrence: CN)
  Receive Date: 20230225
  Receipt Date: 20230225
  Transmission Date: 20230418
  Serious: Yes (Death, Life-Threatening, Other)
  Sender: FDA-Public Use
  Company Number: CN-Accord-300219

PATIENT
  Age: 49 Year
  Sex: Female

DRUGS (2)
  1. GEMCITABINE [Suspect]
     Active Substance: GEMCITABINE
     Indication: Lung adenocarcinoma stage IV
     Dosage: 1.4 G ON D1,8
     Dates: start: 201901, end: 2019
  2. NEDAPLATIN [Suspect]
     Active Substance: NEDAPLATIN
     Indication: Lung adenocarcinoma stage IV
     Dosage: 100 MG ON D2
     Dates: start: 201901, end: 2019

REACTIONS (1)
  - Myelosuppression [Fatal]

NARRATIVE: CASE EVENT DATE: 20190101
